FAERS Safety Report 11285639 (Version 3)
Quarter: 2015Q3

REPORT INFORMATION
  Report Type: Report from Study
  Country: US (occurrence: US)
  Receive Date: 20150720
  Receipt Date: 20150922
  Transmission Date: 20151125
  Serious: Yes (Hospitalization)
  Sender: FDA-Public Use
  Company Number: PHEH2015US005826

PATIENT
  Age: 3 Year
  Sex: Male
  Weight: 18 kg

DRUGS (4)
  1. ILARIS [Suspect]
     Active Substance: CANAKINUMAB
     Dosage: 75 MG, EVERY 4 WEEKS
     Route: 058
     Dates: start: 20150223
  2. MTX [Concomitant]
     Active Substance: METHOTREXATE SODIUM
     Indication: JUVENILE IDIOPATHIC ARTHRITIS
     Route: 058
  3. MTX [Concomitant]
     Active Substance: METHOTREXATE SODIUM
     Indication: PYREXIA
  4. MTX [Concomitant]
     Active Substance: METHOTREXATE SODIUM
     Indication: PAIN

REACTIONS (12)
  - Serum ferritin increased [Unknown]
  - Abdominal pain upper [Recovered/Resolved]
  - Juvenile idiopathic arthritis [Recovering/Resolving]
  - Pain [Recovering/Resolving]
  - Pyrexia [Recovering/Resolving]
  - Diarrhoea [Unknown]
  - Haemoglobin decreased [Unknown]
  - Abdominal discomfort [Unknown]
  - Vomiting [Unknown]
  - Blood albumin decreased [Unknown]
  - Histiocytosis haematophagic [Unknown]
  - Malaise [Unknown]

NARRATIVE: CASE EVENT DATE: 20150306
